FAERS Safety Report 6823489-7 (Version None)
Quarter: 2010Q3

REPORT INFORMATION
  Report Type: 
  Country: None (occurrence: None)
  Receive Date: 20100708
  Receipt Date: 20100629
  Transmission Date: 20110219
  Serious: Yes (Other)
  Sender: FDA-Public Use
  Company Number: US-BAXTER-2010BH015233

PATIENT
  Age: 53 Year
  Sex: Female
  Weight: 83 kg

DRUGS (30)
  1. GAMMAGARD S/D [Suspect]
     Indication: IMMUNODEFICIENCY COMMON VARIABLE
     Route: 042
     Dates: start: 20100402, end: 20100402
  2. GAMMAGARD S/D [Suspect]
     Indication: PRIMARY IMMUNODEFICIENCY SYNDROME
     Route: 042
     Dates: start: 20100402, end: 20100402
  3. GAMMAGARD S/D [Suspect]
     Route: 042
     Dates: start: 20100604, end: 20100604
  4. GAMMAGARD S/D [Suspect]
     Route: 042
     Dates: start: 20100604, end: 20100604
  5. GAMMAGARD S/D [Suspect]
     Route: 042
     Dates: start: 20100205, end: 20100205
  6. GAMMAGARD S/D [Suspect]
     Route: 042
     Dates: start: 20100205, end: 20100205
  7. GAMMAGARD S/D [Suspect]
     Route: 042
     Dates: start: 20100604, end: 20100604
  8. GAMMAGARD S/D [Suspect]
     Route: 042
     Dates: start: 20100604, end: 20100604
  9. GAMMAGARD S/D [Suspect]
     Route: 042
     Dates: start: 20100305, end: 20100305
  10. GAMMAGARD S/D [Suspect]
     Route: 042
     Dates: start: 20100305, end: 20100305
  11. GAMMAGARD S/D [Suspect]
     Route: 042
     Dates: start: 20061201, end: 20070302
  12. GAMMAGARD S/D [Suspect]
     Route: 042
     Dates: start: 20061201, end: 20070302
  13. GAMMAGARD S/D [Suspect]
     Route: 042
     Dates: start: 20100402, end: 20100402
  14. GAMMAGARD S/D [Suspect]
     Route: 042
     Dates: start: 20100402, end: 20100402
  15. GAMMAGARD S/D [Suspect]
     Route: 042
     Dates: start: 20070504
  16. GAMMAGARD S/D [Suspect]
     Route: 042
     Dates: start: 20070504
  17. GAMMAGARD S/D [Suspect]
     Route: 042
     Dates: start: 20100507, end: 20100507
  18. GAMMAGARD S/D [Suspect]
     Route: 042
     Dates: start: 20100507, end: 20100507
  19. POLYGAM [Concomitant]
     Dates: start: 20010501, end: 20050201
  20. POLYGAM [Concomitant]
     Dates: start: 20050415, end: 20061130
  21. POLYGAM [Concomitant]
     Dates: start: 20070303, end: 20070406
  22. SOLU-MEDROL [Concomitant]
     Dates: start: 20100205, end: 20100507
  23. BENADRYL [Concomitant]
     Dates: start: 20100205, end: 20100507
  24. GLUTAMATE SODIUM [Concomitant]
  25. ATORVASTATIN [Concomitant]
  26. ESTROGEN NOS [Concomitant]
  27. MEPERIDINE HYDROCHLORIDE [Concomitant]
  28. ACETYLSALICYLIC ACID [Concomitant]
  29. ALENDRONIC ACID [Concomitant]
  30. BENZODIAZEPINE DERIVATIVES [Concomitant]

REACTIONS (3)
  - BRONCHOSPASM [None]
  - FLUSHING [None]
  - THROAT TIGHTNESS [None]
